FAERS Safety Report 7246119-1 (Version None)
Quarter: 2011Q1

REPORT INFORMATION
  Report Type: 
  Country: None (occurrence: None)
  Receive Date: 20110126
  Receipt Date: 20110119
  Transmission Date: 20110831
  Serious: Yes (Other)
  Sender: FDA-Public Use
  Company Number: A0908717A

PATIENT
  Sex: Female

DRUGS (1)
  1. PAXIL [Suspect]
     Indication: EMOTIONAL DISTRESS
     Route: 048
     Dates: start: 20000301

REACTIONS (10)
  - MYALGIA [None]
  - PAIN [None]
  - HYPERHIDROSIS [None]
  - WITHDRAWAL SYNDROME [None]
  - SUICIDE ATTEMPT [None]
  - HEADACHE [None]
  - DRUG INEFFECTIVE [None]
  - ANXIETY [None]
  - PARAESTHESIA [None]
  - FEELING ABNORMAL [None]
